FAERS Safety Report 5190052-6 (Version None)
Quarter: 2006Q4

REPORT INFORMATION
  Report Type: 
  Country: None (occurrence: None)
  Receive Date: 20061222
  Receipt Date: 20040414
  Transmission Date: 20070319
  Serious: Yes (Hospitalization, Congenital Anomaly)
  Sender: FDA-Public Use
  Company Number: FR-RB-621-2004

PATIENT
  Age: 24 Hour
  Sex: Female
  Weight: 3.7 kg

DRUGS (3)
  1. LEXOMIL [Suspect]
     Indication: DRUG USE FOR UNKNOWN INDICATION
     Route: 048
  2. ALCOHOL ORAL SOLUTION [Suspect]
     Indication: ALCOHOL USE
     Dosage: 3-4 BEERS PER WEEK
     Route: 048
  3. SUBUTEX [Suspect]
     Indication: DRUG DEPENDENCE
     Route: 060

REACTIONS (16)
  - CAESAREAN SECTION [None]
  - CANDIDIASIS [None]
  - CARDIAC MURMUR [None]
  - DECREASED APPETITE [None]
  - DIARRHOEA [None]
  - DRUG EXPOSURE DURING PREGNANCY [None]
  - DRUG WITHDRAWAL SYNDROME [None]
  - DRUG WITHDRAWAL SYNDROME NEONATAL [None]
  - DYSMORPHISM [None]
  - FOETAL ALCOHOL SYNDROME [None]
  - GASTROOESOPHAGEAL REFLUX DISEASE [None]
  - GROWTH RETARDATION [None]
  - HYPERTONIA [None]
  - SOMNOLENCE [None]
  - TREMOR [None]
  - WEIGHT DECREASED [None]
